FAERS Safety Report 14346285 (Version 5)
Quarter: 2024Q3

REPORT INFORMATION
  Report Type: Report from Study
  Country: FR (occurrence: FR)
  Receive Date: 20180103
  Receipt Date: 20240712
  Transmission Date: 20241017
  Serious: Yes (Death, Hospitalization, Other)
  Sender: PFIZER
  Company Number: FR-TAKEDA-2016MPI009681

PATIENT
  Age: 85 Year
  Sex: Female
  Weight: 60 kg

DRUGS (9)
  1. PIPERACILLIN SODIUM\TAZOBACTAM SODIUM [Suspect]
     Active Substance: PIPERACILLIN SODIUM\TAZOBACTAM SODIUM
     Dosage: UNK
  2. BRENTUXIMAB VEDOTIN [Suspect]
     Active Substance: BRENTUXIMAB VEDOTIN
     Indication: Hodgkin^s disease
     Dosage: 110 MG, UNK
     Route: 042
     Dates: start: 20151217, end: 20160330
  3. BRENTUXIMAB VEDOTIN [Suspect]
     Active Substance: BRENTUXIMAB VEDOTIN
     Dosage: 70 MG, UNK
     Dates: start: 20160330
  4. ONDANSETRON HYDROCHLORIDE [Suspect]
     Active Substance: ONDANSETRON HYDROCHLORIDE
     Indication: Antibiotic therapy
     Dosage: 8 MG, UNK
  5. LEVOTHYROXINE [Suspect]
     Active Substance: LEVOTHYROXINE\LEVOTHYROXINE SODIUM
     Indication: Hypothyroidism
     Dosage: 25 UG, UNK
  6. KARDEGIC [Suspect]
     Active Substance: ASPIRIN DL-LYSINE
     Dosage: 160 MG, UNK
  7. RITUXIMAB [Concomitant]
     Active Substance: RITUXIMAB
     Indication: Hodgkin^s disease
     Dosage: UNK
     Dates: start: 20160830, end: 20170216
  8. OXALIPLATIN [Concomitant]
     Active Substance: OXALIPLATIN
     Indication: Hodgkin^s disease
     Dosage: UNK
     Dates: start: 20160830, end: 20170216
  9. GEMCITABINE [Concomitant]
     Active Substance: GEMCITABINE
     Indication: Hodgkin^s disease
     Dosage: UNK
     Dates: start: 20160830, end: 20170216

REACTIONS (18)
  - Neutropenia [Fatal]
  - Nausea [Fatal]
  - Vomiting [Fatal]
  - Neuropathy peripheral [Fatal]
  - Rash [Fatal]
  - Abdominal pain [Fatal]
  - Respiratory distress [Fatal]
  - Weight decreased [Fatal]
  - Toxicity to various agents [Fatal]
  - Hyperthermia [Fatal]
  - Lung disorder [Fatal]
  - Cardio-respiratory arrest [Fatal]
  - Hodgkin^s disease [Fatal]
  - Disease progression [Fatal]
  - Cardiac murmur [Fatal]
  - Tachycardia [Fatal]
  - Asthenia [Fatal]
  - Hyperhidrosis [Fatal]

NARRATIVE: CASE EVENT DATE: 20160101
